FAERS Safety Report 23856925 (Version 1)
Quarter: 2024Q2

REPORT INFORMATION
  Report Type: Spontaneous
  Country: CN (occurrence: CN)
  Receive Date: 20240515
  Receipt Date: 20240515
  Transmission Date: 20240716
  Serious: Yes (Other)
  Sender: FDA-Public Use
  Company Number: CN-SPECGX-T202401080

PATIENT
  Age: 70 Year
  Sex: Male
  Weight: 65 kg

DRUGS (12)
  1. TYLOX [Suspect]
     Active Substance: ACETAMINOPHEN\OXYCODONE HYDROCHLORIDE
     Indication: Analgesic therapy
     Dosage: 10 MILLIGRAM, QD
     Route: 048
     Dates: start: 20240406, end: 20240406
  2. RISEDRONATE SODIUM [Suspect]
     Active Substance: RISEDRONATE SODIUM
     Indication: Osteoporosis
     Dosage: 35 MILLIGRAM, QW
     Route: 048
     Dates: start: 20240405
  3. ALFACALCIDOL [Suspect]
     Active Substance: ALFACALCIDOL
     Indication: Calcium metabolism disorder
     Dosage: 0.25 MICROGRAM, QD
     Route: 048
     Dates: start: 20240405
  4. ALFACALCIDOL [Suspect]
     Active Substance: ALFACALCIDOL
     Indication: Hypophosphataemia
  5. SODIUM CHLORIDE [Suspect]
     Active Substance: SODIUM CHLORIDE
     Indication: Analgesic therapy
     Dosage: 200 MILLILITER (0.9 %)
     Route: 065
     Dates: start: 20240405
  6. SODIUM CHLORIDE [Suspect]
     Active Substance: SODIUM CHLORIDE
     Indication: Antiinflammatory therapy
     Dosage: 100 MILLILITER (0.9 %)
     Route: 065
     Dates: start: 20240405
  7. LORNOXICAM [Suspect]
     Active Substance: LORNOXICAM
     Indication: Analgesic therapy
     Dosage: 8 MILLIGRAM, QD
     Route: 042
     Dates: start: 20240405
  8. DYPHYLLINE [Suspect]
     Active Substance: DYPHYLLINE
     Indication: Asthma
     Dosage: 0.5 GRAM, QD + 0.9% 200 ML SODIUM CHLORIDE
     Route: 042
     Dates: start: 20240405
  9. AMOXICILLIN\CLAVULANATE POTASSIUM [Suspect]
     Active Substance: AMOXICILLIN\CLAVULANATE POTASSIUM
     Indication: Antiinflammatory therapy
     Dosage: 1.2 GRAM, BID
     Route: 042
     Dates: start: 20240405
  10. ATORVASTATIN CALCIUM [Suspect]
     Active Substance: ATORVASTATIN CALCIUM
     Indication: Hyperlipidaemia
     Dosage: 10 MILLIGRAM, QD
     Route: 048
     Dates: start: 20240405
  11. ESZOPICLONE [Suspect]
     Active Substance: ESZOPICLONE
     Indication: Sleep disorder
     Dosage: 1 MILLIGRAM, PRN
     Route: 048
  12. METHYLPREDNISOLONE SODIUM SUCCINATE [Suspect]
     Active Substance: METHYLPREDNISOLONE SODIUM SUCCINATE
     Indication: Product used for unknown indication
     Dosage: 120 MILLIGRAM
     Route: 041

REACTIONS (14)
  - Wheezing [Recovering/Resolving]
  - Posture abnormal [Recovering/Resolving]
  - Conjunctival hyperaemia [Recovering/Resolving]
  - Cyanosis [Recovering/Resolving]
  - Rales [Unknown]
  - Stridor [Unknown]
  - Heart rate increased [Unknown]
  - Blood pressure increased [Unknown]
  - Blood glucose increased [Unknown]
  - Hyperhidrosis [Recovering/Resolving]
  - Anxiety [Unknown]
  - Swelling face [Unknown]
  - Tachypnoea [Recovering/Resolving]
  - Dyspnoea [Recovering/Resolving]

NARRATIVE: CASE EVENT DATE: 20240407
